FAERS Safety Report 11654576 (Version 1)
Quarter: 2015Q4

REPORT INFORMATION
  Report Type: Spontaneous
  Country: US (occurrence: None)
  Receive Date: 20151022
  Receipt Date: 20151022
  Transmission Date: 20160304
  Serious: Yes (Other)
  Sender: FDA-Public Use
  Company Number: None

PATIENT
  Age: 39 Year
  Sex: Male
  Weight: 92.99 kg

DRUGS (2)
  1. IBUPROFEN. [Concomitant]
     Active Substance: IBUPROFEN
  2. FINASTERIDE. [Suspect]
     Active Substance: FINASTERIDE
     Dosage: 1/5TH PILL?APPROXIMATELY 2 YEARS
     Route: 048

REACTIONS (4)
  - Dysphoria [None]
  - Insomnia [None]
  - Suicidal ideation [None]
  - Depression [None]

NARRATIVE: CASE EVENT DATE: 20151006
